FAERS Safety Report 23501031 (Version 1)
Quarter: 2024Q1

REPORT INFORMATION
  Report Type: Report from Study
  Country: JP (occurrence: JP)
  Receive Date: 20240208
  Receipt Date: 20240208
  Transmission Date: 20240410
  Serious: Yes (Death)
  Sender: FDA-Public Use
  Company Number: JP-RECORDATI RARE DISEASE INC.-2023004865

PATIENT

DRUGS (10)
  1. NEOPROFEN [Suspect]
     Active Substance: IBUPROFEN LYSINE
     Indication: Patent ductus arteriosus
     Dosage: 7 MILLIGRAM FOR THE DURATION OF 60 MINUTES- FIRST DOSE
     Route: 042
     Dates: start: 20190526, end: 20190526
  2. NEOPROFEN [Suspect]
     Active Substance: IBUPROFEN LYSINE
     Dosage: 3.3 MILLIGRAM FOR THE DURATION- SECOND DOSEOF 60 MINUTES
     Route: 042
     Dates: start: 20190527, end: 20190527
  3. NEOPROFEN [Suspect]
     Active Substance: IBUPROFEN LYSINE
     Dosage: 3.3 MILLIGRAM FOR THE DURATION- THIRD DOSEOF 60 MINUTES
     Route: 042
     Dates: start: 20190528, end: 20190528
  4. INDOMETHACIN [Suspect]
     Active Substance: INDOMETHACIN
     Indication: Patent ductus arteriosus
     Dosage: UNK
     Route: 042
     Dates: start: 20190529, end: 20190529
  5. DOPAMINE HYDROCHLORIDE [Concomitant]
     Active Substance: DOPAMINE HYDROCHLORIDE
     Indication: Hypotension
     Dosage: UNK
     Route: 042
     Dates: start: 20190526, end: 20190707
  6. CEFAZOLIN [Concomitant]
     Active Substance: CEFAZOLIN
     Indication: Infection
     Dosage: UNK
     Route: 042
     Dates: start: 20190526, end: 20190528
  7. FOSFLUCONAZOLE [Concomitant]
     Active Substance: FOSFLUCONAZOLE
     Indication: Infection
     Dosage: UNK
     Route: 042
     Dates: start: 20190526, end: 20190526
  8. GENTAMICIN [Concomitant]
     Active Substance: GENTAMICIN
     Indication: Infection
     Dosage: UNK
     Route: 042
     Dates: start: 20190526, end: 20190527
  9. FACTOR XIII CONCENTRATE (HUMAN) [Concomitant]
     Active Substance: FACTOR XIII CONCENTRATE (HUMAN)
     Indication: Haemorrhage
     Dosage: UNK
     Route: 042
     Dates: start: 20190526, end: 20190526
  10. PULMONARY SURFACTANT NOS [Concomitant]
     Indication: Neonatal respiratory distress syndrome
     Dosage: UNK
     Dates: start: 20190526, end: 20190526

REACTIONS (4)
  - Intraventricular haemorrhage [Fatal]
  - Urine output decreased [Fatal]
  - Necrotising colitis [Fatal]
  - Therapeutic product effect incomplete [Recovered/Resolved]

NARRATIVE: CASE EVENT DATE: 20190528
